FAERS Safety Report 15968628 (Version 1)
Quarter: 2019Q1

REPORT INFORMATION
  Report Type: Report from Study
  Country: CA (occurrence: CA)
  Receive Date: 20190215
  Receipt Date: 20190215
  Transmission Date: 20190418
  Serious: Yes (Hospitalization, Other)
  Sender: FDA-Public Use
  Company Number: CA-WHANIN PHARM. CO., LTD.-2019M1014753

PATIENT
  Age: 48 Year
  Sex: Male

DRUGS (1)
  1. CLOZAPINE. [Suspect]
     Active Substance: CLOZAPINE
     Indication: PRODUCT USED FOR UNKNOWN INDICATION
     Dosage: UNK
     Dates: start: 201901, end: 20190206

REACTIONS (4)
  - Myocarditis [Unknown]
  - Respiratory tract infection viral [Unknown]
  - Delirium [Unknown]
  - Myositis [Unknown]

NARRATIVE: CASE EVENT DATE: 201902
